FAERS Safety Report 14312155 (Version 1)
Quarter: 2017Q4

REPORT INFORMATION
  Report Type: Spontaneous
  Country: FR (occurrence: FR)
  Receive Date: 20171221
  Receipt Date: 20171221
  Transmission Date: 20180321
  Serious: Yes (Other)
  Sender: FDA-Public Use
  Company Number: FR-MERCK KGAA-2037528

PATIENT
  Age: 58 Year
  Sex: Male
  Weight: 72 kg

DRUGS (2)
  1. NOVOTHYROX [Suspect]
     Active Substance: LEVOTHYROXINE SODIUM
     Indication: THYROIDECTOMY
     Route: 048
     Dates: start: 201706
  2. NOVOTHYROX [Suspect]
     Active Substance: LEVOTHYROXINE SODIUM

REACTIONS (5)
  - Asthenia [Recovered/Resolved]
  - Blood thyroid stimulating hormone [Recovered/Resolved]
  - Headache [Unknown]
  - Sleep disorder [Recovered/Resolved]
  - Aggression [Recovering/Resolving]

NARRATIVE: CASE EVENT DATE: 201706
